FAERS Safety Report 6183038-6 (Version None)
Quarter: 2009Q2

REPORT INFORMATION
  Report Type: 
  Country: None (occurrence: None)
  Receive Date: 20090507
  Receipt Date: 20090427
  Transmission Date: 20091009
  Serious: Yes (Death, Other)
  Sender: FDA-Public Use
  Company Number: GB-GILEAD-2009-0021782

PATIENT
  Sex: Female

DRUGS (5)
  1. AMBRISENTAN [Suspect]
     Indication: PULMONARY ARTERIAL HYPERTENSION
     Route: 048
     Dates: start: 20080813
  2. SALBUTAMOL SULFATE [Concomitant]
     Dates: start: 20080812
  3. ACETAMINOPHEN W/ CODEINE [Concomitant]
     Dates: start: 20080812
  4. METOCLOPRAMIDE [Concomitant]
     Dates: start: 20070705
  5. FLUOXETINE HCL [Concomitant]
     Dates: start: 20071211

REACTIONS (3)
  - ALANINE AMINOTRANSFERASE INCREASED [None]
  - BLOOD BILIRUBIN INCREASED [None]
  - DEATH [None]
